FAERS Safety Report 9099246 (Version 1)
Quarter: 2013Q1

REPORT INFORMATION
  Report Type: Spontaneous
  Country: US (occurrence: US)
  Receive Date: 20130213
  Receipt Date: 20130213
  Transmission Date: 20140127
  Serious: Yes (Other)
  Sender: FDA-Public Use
  Company Number: US-ASTRAZENECA-2013SE08065

PATIENT
  Age: 67 Year
  Sex: Female
  Weight: 95.3 kg

DRUGS (12)
  1. ARIMIDEX [Suspect]
     Indication: LUNG NEOPLASM
     Route: 048
     Dates: start: 20130123
  2. FOLIC ACID [Concomitant]
     Indication: VITAMIN SUPPLEMENTATION
  3. VITAMIN D [Concomitant]
     Indication: VITAMIN SUPPLEMENTATION
  4. VITAMIN E [Concomitant]
     Indication: VITAMIN SUPPLEMENTATION
  5. VITAMIN B12 [Concomitant]
     Indication: VITAMIN SUPPLEMENTATION
  6. BETA CAROTENE [Concomitant]
     Indication: VITAMIN SUPPLEMENTATION
  7. NASONEX [Concomitant]
     Indication: ASTHMA
  8. PROAIR [Concomitant]
     Indication: ASTHMA
     Route: 055
  9. LORAZEPAM [Concomitant]
  10. ASTHMANEX [Concomitant]
     Indication: ASTHMA
  11. CLARITIN [Concomitant]
     Indication: ASTHMA
  12. NORVASC [Concomitant]

REACTIONS (9)
  - Wheezing [Unknown]
  - Lip swelling [Unknown]
  - Swollen tongue [Unknown]
  - Dyspnoea [Unknown]
  - Chest discomfort [Unknown]
  - Dysphagia [Unknown]
  - Cough [Unknown]
  - Pulmonary oedema [Unknown]
  - Eye swelling [Unknown]
